FAERS Safety Report 23603025 (Version 1)
Quarter: 2024Q1

REPORT INFORMATION
  Report Type: Spontaneous
  Country: US (occurrence: None)
  Receive Date: 20240306
  Receipt Date: 20240306
  Transmission Date: 20240410
  Serious: No
  Sender: FDA-Public Use
  Company Number: 2024A047195

PATIENT
  Age: 65 Year
  Sex: Female

DRUGS (3)
  1. CRESTOR [Suspect]
     Active Substance: ROSUVASTATIN CALCIUM
     Indication: Blood cholesterol
     Route: 048
  2. COMBIPATCH [Suspect]
     Active Substance: ESTRADIOL\NORETHINDRONE ACETATE
     Indication: Menopausal symptoms
     Dosage: 0.05/0.14
     Route: 062
  3. COMBIPATCH [Suspect]
     Active Substance: ESTRADIOL\NORETHINDRONE ACETATE
     Indication: Bone density decreased
     Dosage: 0.05/0.14
     Route: 062

REACTIONS (6)
  - Hair texture abnormal [Unknown]
  - Alopecia [Unknown]
  - Food allergy [Unknown]
  - Memory impairment [Recovering/Resolving]
  - Amnesia [Recovering/Resolving]
  - Arthralgia [Unknown]
